FAERS Safety Report 10151905 (Version 1)
Quarter: 2014Q2

REPORT INFORMATION
  Report Type: Spontaneous
  Country: BR (occurrence: BR)
  Receive Date: 20140505
  Receipt Date: 20140505
  Transmission Date: 20141212
  Serious: Yes (Other)
  Sender: FDA-Public Use
  Company Number: BR-JNJFOC-20140419753

PATIENT
  Sex: Female

DRUGS (3)
  1. REMICADE [Suspect]
     Indication: CROHN^S DISEASE
     Route: 065
     Dates: start: 201401
  2. REMICADE [Suspect]
     Indication: CROHN^S DISEASE
     Route: 065
  3. REMICADE [Suspect]
     Indication: CROHN^S DISEASE
     Route: 065
     Dates: start: 201312

REACTIONS (1)
  - Inflammation [Unknown]
